FAERS Safety Report 6645989-5 (Version None)
Quarter: 2010Q1

REPORT INFORMATION
  Report Type: 
  Country: None (occurrence: None)
  Receive Date: 20100318
  Receipt Date: 20100312
  Transmission Date: 20100710
  Serious: Yes (Other)
  Sender: FDA-Public Use
  Company Number: ALL1-2010-01449

PATIENT
  Age: 63 Year
  Sex: Male

DRUGS (2)
  1. FOSRENOL [Suspect]
     Indication: HYPERPHOSPHATAEMIA
     Dosage: 500 MG, WITH EACH MEAL, ORAL ; 1000 MG, WITH MEALS AND SNACKS, ORAL
     Route: 048
     Dates: start: 20100115, end: 20100101
  2. FOSRENOL [Suspect]
     Indication: HYPERPHOSPHATAEMIA
     Dosage: 500 MG, WITH EACH MEAL, ORAL ; 1000 MG, WITH MEALS AND SNACKS, ORAL
     Route: 048
     Dates: start: 20100101

REACTIONS (4)
  - FOOT FRACTURE [None]
  - MULTIPLE FRACTURES [None]
  - NAUSEA [None]
  - PRODUCT QUALITY ISSUE [None]
